FAERS Safety Report 12755939 (Version 1)
Quarter: 2016Q3

REPORT INFORMATION
  Report Type: Spontaneous
  Country: BE (occurrence: BE)
  Receive Date: 20160916
  Receipt Date: 20160916
  Transmission Date: 20161109
  Serious: Yes (Other)
  Sender: FDA-Public Use
  Company Number: BE-PFIZER INC-2016373450

PATIENT
  Age: 65 Year
  Sex: Female

DRUGS (4)
  1. ENBREL [Suspect]
     Active Substance: ETANERCEPT
     Indication: PSORIASIS
     Dosage: 50 MG, WEEKLY
     Route: 058
     Dates: start: 20120314, end: 2014
  2. ENBREL [Suspect]
     Active Substance: ETANERCEPT
     Dosage: 50 MG, WEEKLY
     Route: 058
     Dates: start: 2014, end: 20160531
  3. LEDERTREXATE [Suspect]
     Active Substance: METHOTREXATE
     Dosage: UNK
  4. NEORAL SANDIMMUN [Suspect]
     Active Substance: CYCLOSPORINE
     Dosage: UNK

REACTIONS (1)
  - Colon cancer [Unknown]
